FAERS Safety Report 16197913 (Version 6)
Quarter: 2020Q4

REPORT INFORMATION
  Report Type: Spontaneous
  Country: US (occurrence: US)
  Receive Date: 20190415
  Receipt Date: 20201012
  Transmission Date: 20210113
  Serious: No
  Sender: FDA-Public Use
  Company Number: US-PFIZER INC-2019156653

PATIENT
  Age: 67 Year
  Sex: Female
  Weight: 95.25 kg

DRUGS (1)
  1. XELJANZ XR [Suspect]
     Active Substance: TOFACITINIB CITRATE
     Indication: RHEUMATOID ARTHRITIS
     Dosage: 11 MG, 1X/DAY [ONCE A DAY]
     Route: 048
     Dates: start: 2019

REACTIONS (5)
  - Movement disorder [Unknown]
  - Sensitivity to weather change [Recovered/Resolved with Sequelae]
  - Body height decreased [Unknown]
  - Pain [Unknown]
  - Condition aggravated [Recovered/Resolved with Sequelae]

NARRATIVE: CASE EVENT DATE: 202003
